FAERS Safety Report 10067673 (Version 1)
Quarter: 2014Q2

REPORT INFORMATION
  Report Type: Spontaneous
  Country: US (occurrence: None)
  Receive Date: 20140408
  Receipt Date: 20140408
  Transmission Date: 20141212
  Serious: No
  Sender: FDA-Public Use
  Company Number: None

PATIENT
  Age: 71 Year
  Sex: Female
  Weight: 71 kg

DRUGS (7)
  1. BYETTA [Suspect]
     Indication: DIABETES MELLITUS
     Route: 058
     Dates: start: 2010, end: 20140320
  2. ASPIRIN [Concomitant]
  3. CITALOPRAM [Concomitant]
  4. FUROSEMIDE [Concomitant]
  5. LORATADINE [Concomitant]
  6. SIMVASTATIN [Concomitant]
  7. TRAZODONE [Concomitant]

REACTIONS (1)
  - Cholecystitis [None]
